FAERS Safety Report 17747220 (Version 1)
Quarter: 2020Q2

REPORT INFORMATION
  Report Type: Report from Study
  Country: BR (occurrence: BR)
  Receive Date: 20200505
  Receipt Date: 20200505
  Transmission Date: 20200714
  Serious: Yes (Death, Disabling, Other)
  Sender: FDA-Public Use
  Company Number: NVSC2020BR119492

PATIENT
  Age: 47 Year
  Sex: Male

DRUGS (1)
  1. VOTRIENT [Suspect]
     Active Substance: PAZOPANIB HYDROCHLORIDE
     Indication: RENAL CANCER
     Dosage: UNK (2 PER DAYS)
     Route: 065
     Dates: start: 20200413

REACTIONS (11)
  - Cardiac failure [Fatal]
  - Movement disorder [Unknown]
  - Dysstasia [Unknown]
  - Dyspnoea [Fatal]
  - Respiratory arrest [Unknown]
  - Respiratory failure [Fatal]
  - Metastases to bone [Unknown]
  - Muscular weakness [Unknown]
  - Speech disorder [Unknown]
  - Product administration error [Unknown]
  - Spinal column injury [Unknown]

NARRATIVE: CASE EVENT DATE: 20200416
